FAERS Safety Report 25236745 (Version 1)
Quarter: 2025Q2

REPORT INFORMATION
  Report Type: Spontaneous
  Country: ES (occurrence: ES)
  Receive Date: 20250424
  Receipt Date: 20250424
  Transmission Date: 20250717
  Serious: Yes (Other)
  Sender: NOVARTIS
  Company Number: ES-002147023-NVSC2025ES066782

PATIENT
  Sex: Female

DRUGS (2)
  1. RIBOCICLIB [Suspect]
     Active Substance: RIBOCICLIB
     Indication: Metastases to liver
     Route: 065
  2. RIBOCICLIB [Suspect]
     Active Substance: RIBOCICLIB
     Route: 065

REACTIONS (6)
  - Neutropenia [Unknown]
  - Pseudocirrhosis [Unknown]
  - Portal hypertension [Unknown]
  - Ascites [Unknown]
  - Therapy partial responder [Unknown]
  - Off label use [Unknown]
